FAERS Safety Report 25921024 (Version 1)
Quarter: 2025Q4

REPORT INFORMATION
  Report Type: Spontaneous
  Country: EU (occurrence: EU)
  Receive Date: 20251014
  Receipt Date: 20251014
  Transmission Date: 20260117
  Serious: Yes (Other)
  Sender: VERTEX
  Company Number: None

PATIENT
  Age: 27 Year
  Sex: Female
  Weight: 67 kg

DRUGS (4)
  1. ELEXACAFTOR\IVACAFTOR\TEZACAFTOR [Suspect]
     Active Substance: ELEXACAFTOR\IVACAFTOR\TEZACAFTOR
     Indication: Cystic fibrosis
     Dosage: 2 DOSAGE FORMS (75 MG IVACAFTOR/50 MG TEZACAFTOR/100 MG ELEXACAFTOR); DAILY
     Route: 048
     Dates: start: 20220622, end: 20220630
  2. ELEXACAFTOR\IVACAFTOR\TEZACAFTOR [Suspect]
     Active Substance: ELEXACAFTOR\IVACAFTOR\TEZACAFTOR
     Dosage: UNKNOWN DOSAGE REGIMEN
     Route: 048
     Dates: start: 20221007
  3. KALYDECO [Suspect]
     Active Substance: IVACAFTOR
     Indication: Cystic fibrosis
     Dosage: 1 DOSAGE FORM, QD
     Route: 048
     Dates: start: 20220622, end: 20220630
  4. KALYDECO [Suspect]
     Active Substance: IVACAFTOR
     Dosage: 1 DOSAGE FORM, QD
     Route: 048
     Dates: start: 20221007

REACTIONS (8)
  - Sleep disorder [Recovered/Resolved]
  - Asthenia [Recovered/Resolved]
  - Tremor [Recovered/Resolved]
  - Abnormal sensation in eye [Recovered/Resolved]
  - Nasal dryness [Recovered/Resolved]
  - Hyperaesthesia teeth [Recovered/Resolved]
  - Nausea [Recovered/Resolved]
  - Depressed mood [Recovering/Resolving]

NARRATIVE: CASE EVENT DATE: 20221025
